FAERS Safety Report 9171546 (Version 2)
Quarter: 2013Q2

REPORT INFORMATION
  Report Type: Spontaneous
  Country: US (occurrence: US)
  Receive Date: 20130319
  Receipt Date: 20130506
  Transmission Date: 20140414
  Serious: Yes (Other)
  Sender: FDA-Public Use
  Company Number: US-GLAXOSMITHKLINE-A1015483A

PATIENT
  Age: 81 Year
  Sex: Female

DRUGS (3)
  1. ADVAIR [Suspect]
     Indication: ASTHMA
     Dosage: 1PUFF TWICE PER DAY
     Route: 055
     Dates: start: 2008
  2. FLONASE [Concomitant]
  3. HCTZ [Concomitant]

REACTIONS (4)
  - Pulmonary congestion [Recovering/Resolving]
  - Dysphonia [Recovering/Resolving]
  - Drug ineffective [Recovering/Resolving]
  - Asthma [Recovering/Resolving]
